FAERS Safety Report 9324223 (Version 5)
Quarter: 2014Q1

REPORT INFORMATION
  Report Type: Spontaneous
  Country: US (occurrence: US)
  Receive Date: 20130603
  Receipt Date: 20140319
  Transmission Date: 20141002
  Serious: No
  Sender: FDA-Public Use
  Company Number: US-009507513-1305USA018024

PATIENT
  Sex: Female
  Weight: 61.22 kg

DRUGS (1)
  1. NUVARING [Suspect]
     Indication: CONTRACEPTION
     Dosage: UNK
     Route: 067
     Dates: start: 201009, end: 201106

REACTIONS (25)
  - Eye disorder [Unknown]
  - Deep vein thrombosis [Unknown]
  - Dizziness [Unknown]
  - Back pain [Unknown]
  - Muscle strain [Unknown]
  - Nausea [Unknown]
  - Depression [Unknown]
  - Mitral valve prolapse [Unknown]
  - Panic attack [Unknown]
  - Gastrooesophageal reflux disease [Unknown]
  - Peptic ulcer [Unknown]
  - Deep vein thrombosis [Recovered/Resolved]
  - Radiculitis lumbosacral [Unknown]
  - Arthralgia [Unknown]
  - Spondylolisthesis [Unknown]
  - Limb asymmetry [Unknown]
  - Myelopathy [Unknown]
  - Lumbar radiculopathy [Unknown]
  - Sleep disorder [Unknown]
  - Weight increased [Unknown]
  - Fatigue [Unknown]
  - Joint stiffness [Unknown]
  - Muscle spasms [Unknown]
  - Arthralgia [Unknown]
  - Phlebitis [Unknown]
